FAERS Safety Report 4395550-0 (Version None)
Quarter: 2004Q3

REPORT INFORMATION
  Report Type: 
  Country: None (occurrence: None)
  Receive Date: 20040713
  Receipt Date: 20040707
  Transmission Date: 20050211
  Serious: Yes (Hospitalization, Other)
  Sender: FDA-Public Use
  Company Number: 200415106US

PATIENT
  Sex: Male

DRUGS (25)
  1. ENOXAPARIN SODIUM [Suspect]
     Indication: THROMBOSIS PROPHYLAXIS
     Route: 058
     Dates: start: 20040616, end: 20040620
  2. ECOTRIN [Concomitant]
     Indication: OSTEOARTHRITIS
     Dosage: DOSE: UNK
     Route: 048
     Dates: start: 20040501, end: 20040613
  3. MULTIVITAMINS, PLAIN [Concomitant]
     Dosage: DOSE: UNK
     Route: 048
     Dates: start: 20040501
  4. GLUCOSAMINE W/CHONDROITIN SULFATES [Concomitant]
     Indication: OSTEOARTHRITIS
     Dosage: DOSE: UNK
     Route: 048
     Dates: start: 20040501, end: 20040613
  5. DOCUSATE CALCIUM [Concomitant]
     Indication: CONSTIPATION PROPHYLAXIS
     Route: 048
     Dates: start: 20040616
  6. BEXTRA [Concomitant]
     Indication: POST PROCEDURAL PAIN
     Route: 048
     Dates: start: 20040615, end: 20040615
  7. DEXTROSE 5% [Concomitant]
     Route: 042
     Dates: start: 20040615, end: 20040616
  8. MORPHINE [Concomitant]
     Indication: POST PROCEDURAL PAIN
     Dosage: DOSE: UNK
     Route: 042
     Dates: start: 20040615, end: 20040616
  9. PROTONIX [Concomitant]
     Route: 048
     Dates: start: 20040615, end: 20040617
  10. VANCOMYCIN [Concomitant]
     Indication: INFECTION PROPHYLAXIS
     Route: 042
     Dates: start: 20040616, end: 20040616
  11. PERCOCET [Concomitant]
     Indication: POST PROCEDURAL PAIN
     Dosage: DOSE: 5/325
     Route: 048
     Dates: start: 20040616, end: 20040617
  12. ZOFRAN [Concomitant]
     Indication: NAUSEA
     Route: 042
     Dates: start: 20040616, end: 20040616
  13. OXYCONTIN [Concomitant]
     Indication: POST PROCEDURAL PAIN
     Route: 048
     Dates: start: 20040617
  14. IRON [Concomitant]
     Indication: ANAEMIA
     Route: 048
     Dates: start: 20040619
  15. ARIXTRA [Concomitant]
     Indication: DEEP VEIN THROMBOSIS
     Route: 058
     Dates: start: 20040621
  16. ATIVAN [Concomitant]
     Dosage: DOSE: UNK
     Route: 048
     Dates: start: 20040620
  17. VERSED [Concomitant]
     Route: 042
     Dates: start: 20040615, end: 20040615
  18. SEVOFLURANE [Concomitant]
     Dosage: DOSE: UNK
     Route: 055
     Dates: start: 20040615, end: 20040615
  19. FENTANYL [Concomitant]
     Route: 042
     Dates: start: 20040615, end: 20040615
  20. PROPOFOL [Concomitant]
     Route: 042
     Dates: start: 20040615, end: 20040615
  21. LIDOCAINE [Concomitant]
     Route: 042
     Dates: start: 20040615, end: 20040615
  22. VANCOMYCIN [Concomitant]
     Dosage: ROUTE: IRRIGATION
     Route: 050
     Dates: start: 20040615, end: 20040615
  23. GENTAMICIN [Concomitant]
     Indication: INFECTION PROPHYLAXIS
     Dosage: ROUTE: IRRIGATION
     Route: 050
     Dates: start: 20040615, end: 20040615
  24. CEFAZOLIN [Concomitant]
     Indication: INFECTION PROPHYLAXIS
     Dosage: ROUTE: IRRIGATION
     Route: 050
     Dates: start: 20040615, end: 20040615
  25. MARCAINE HCL W/ EPINEPHRINE [Concomitant]
     Indication: POST PROCEDURAL PAIN
     Dates: start: 20040615, end: 20040615

REACTIONS (1)
  - DEMENTIA [None]
